FAERS Safety Report 25810848 (Version 3)
Quarter: 2025Q4

REPORT INFORMATION
  Report Type: Report from Study
  Country: US (occurrence: US)
  Receive Date: 20250917
  Receipt Date: 20251205
  Transmission Date: 20260118
  Serious: No
  Sender: BIOVITRUM
  Company Number: US-BIOVITRUM-2025-US-008541

PATIENT
  Age: 16 Year
  Sex: Female

DRUGS (2)
  1. DOPTELET [Suspect]
     Active Substance: AVATROMBOPAG MALEATE
     Indication: Immune thrombocytopenia
     Dosage: 1 TIME A DAY
     Route: 048
     Dates: start: 202505
  2. DOPTELET [Suspect]
     Active Substance: AVATROMBOPAG MALEATE
     Dosage: ONCE DAILY
     Route: 048
     Dates: start: 202505

REACTIONS (4)
  - Headache [Not Recovered/Not Resolved]
  - Nasopharyngitis [Unknown]
  - Migraine [Unknown]
  - Platelet count increased [Unknown]
